FAERS Safety Report 17470402 (Version 1)
Quarter: 2020Q1

REPORT INFORMATION
  Report Type: Spontaneous
  Country: NL (occurrence: NL)
  Receive Date: 20200228
  Receipt Date: 20200228
  Transmission Date: 20200409
  Serious: Yes (Hospitalization, Other)
  Sender: FDA-Public Use
  Company Number: NL-TEVA-2020-NL-1192246

PATIENT
  Age: 10 Year
  Sex: Female
  Weight: 24.7 kg

DRUGS (15)
  1. COLECALCIFEROL 800IE [Concomitant]
     Dosage: EVERY OTHER DAY 1 (800 IU)
  2. TRIMETHOPRIM/SULFAMETHOXAZOL (TABLET 80/400 MG) [Suspect]
     Active Substance: SULFAMETHOXAZOLE\TRIMETHOPRIM
     Indication: PROPHYLAXIS AGAINST TRANSPLANT REJECTION
     Dosage: 3X/WEEK 1 TABLET
     Dates: start: 20181116, end: 20190501
  3. NATRIUMWATERSTOFCARBONAAT TABLET [Concomitant]
     Dosage: 3DD 1000MG
  4. TACROLIMUS CAPSULE (PROGRAFT),   2 MG [Concomitant]
     Dosage: 2DD2MG
  5. MYCOFENOLAATMOFETIL TABLET (CELLCEPT),   250 MG [Concomitant]
     Dosage: 3DD1 (250 MG)
  6. DARBEPOETINE ALFA INJV WWSP 30MCG=0,3ML(100MCG/ML), [Concomitant]
     Dosage: 1X PER WEEK
  7. OMNITROPE SUREPAL INJECTIEPEN ) INJVLST 10MG/ML PATR 1,5ML [Concomitant]
     Dosage: 1 DOSAGE FORMS DAILY; 1DD1
  8. RANITIDINE TABLET  150 MG [Concomitant]
     Dosage: 1DD1 (150 MG)
  9. PREDNISOLON [Concomitant]
     Active Substance: PREDNISOLONE
     Dosage: 1X PER DAY AT 8 AM 5 MG ORALLY AND 1X PER DAY AT 8 PM 2.5 MG.
  10. VALGANCICLOVIR (TABLET, 450 MG) [Suspect]
     Active Substance: VALGANCICLOVIR
     Indication: PROPHYLAXIS AGAINST TRANSPLANT REJECTION
     Dates: start: 20181116, end: 20190501
  11. MACROGOL POEDER V DRANK (FORLAX),   10 G [Concomitant]
     Dosage: 1DD1 IF NECESSARY (10 GRAM)
  12. AMLODIPINE 7,5MG [Concomitant]
     Dosage: 2DD7.5MG
  13. MYCOFENOLZUUR (TABLET, 500 MG) (MYCOPHENOLATE MOFETIL) [Suspect]
     Active Substance: MYCOPHENOLATE MOFETIL
     Indication: IMMUNOSUPPRESSANT DRUG THERAPY
     Dosage: 2DD 500 MG
     Dates: start: 20170511, end: 20190501
  14. ALFACALCIDOL CAPSULE,   0,25 MCG [Concomitant]
     Dosage: 1DD1
  15. FERROFUMARAAT TABLET 200MG [Concomitant]
     Active Substance: FERROUS FUMARATE
     Dosage: 1DD1 (200 MG)

REACTIONS (1)
  - Bone marrow failure [Recovered/Resolved]

NARRATIVE: CASE EVENT DATE: 20190430
